FAERS Safety Report 20126866 (Version 1)
Quarter: 2021Q4

REPORT INFORMATION
  Report Type: Spontaneous
  Country: US (occurrence: US)
  Receive Date: 20211129
  Receipt Date: 20211129
  Transmission Date: 20220303
  Serious: No
  Sender: FDA-Public Use
  Company Number: US-Fresenius Medical Care Renal Therapies Group-FMC-2111-001746

PATIENT
  Sex: Female

DRUGS (1)
  1. DELFLEX WITH DEXTROSE 2.5% LOW MAGNESIUM LOW CALCIUM [Suspect]
     Active Substance: CALCIUM CHLORIDE\DEXTROSE\MAGNESIUM CHLORIDE\SODIUM CHLORIDE\SODIUM LACTATE
     Indication: End stage renal disease
     Dosage: TIDAL BASED FILLS 6 TOTAL VOLUME 11,500ML  PAUSE N/A FIRST FILL VOLUME 2100ML TIDAL FILL VOLUME 1700
     Route: 033

REACTIONS (2)
  - Discomfort [Unknown]
  - Abdominal distension [Unknown]
